FAERS Safety Report 16891158 (Version 1)
Quarter: 2019Q4

REPORT INFORMATION
  Report Type: Spontaneous
  Country: US (occurrence: US)
  Receive Date: 20191007
  Receipt Date: 20191007
  Transmission Date: 20200122
  Serious: No
  Sender: FDA-Public Use
  Company Number: US-SA-2019SA274792

PATIENT
  Age: 58 Year
  Sex: Male

DRUGS (1)
  1. LANTUS SOLOSTAR [Suspect]
     Active Substance: INSULIN GLARGINE
     Indication: TYPE 2 DIABETES MELLITUS
     Dosage: 12 U, DAILY AT NIGHT
     Route: 065
     Dates: start: 20191001, end: 20191001

REACTIONS (7)
  - Blood glucose increased [Unknown]
  - Feeling hot [Unknown]
  - Insomnia [Unknown]
  - Dyspnoea [Unknown]
  - Akathisia [Unknown]
  - Hypersensitivity [Unknown]
  - Anxiety [Unknown]

NARRATIVE: CASE EVENT DATE: 20191002
